FAERS Safety Report 5311453-9 (Version None)
Quarter: 2007Q2

REPORT INFORMATION
  Report Type: 
  Country: None (occurrence: None)
  Receive Date: 20070426
  Receipt Date: 20070426
  Transmission Date: 20071010
  Serious: Yes (Hospitalization)
  Sender: FDA-Public Use
  Company Number: None

PATIENT
  Age: 76 Year
  Sex: Male
  Weight: 86.2 kg

DRUGS (25)
  1. LISINOPRIL [Suspect]
     Indication: DIABETES MELLITUS NON-INSULIN-DEPENDENT
     Dosage: 10MG DAILY
     Dates: start: 20060824
  2. LISINOPRIL [Suspect]
     Indication: HYPERTENSION
     Dosage: 10MG DAILY
     Dates: start: 20060824
  3. LISINOPRIL [Concomitant]
  4. ASPIRIN [Concomitant]
  5. ATENOLOL [Concomitant]
  6. CELLUVISC [Concomitant]
  7. CIPROFLOXACIN HCL [Concomitant]
  8. CLONAZEPAM [Concomitant]
  9. CLOPIDOGREL [Concomitant]
  10. CYANOCOBALAMIN [Concomitant]
  11. FLUNISOLIDE [Concomitant]
  12. FUROSEMIDE [Concomitant]
  13. GEMFIBROZIL [Concomitant]
  14. GLIPIZIDE [Concomitant]
  15. LEVALBUTEROL TART [Concomitant]
  16. SYNTHROID [Concomitant]
  17. MECLIZINE HCL [Concomitant]
  18. NAPROXEN [Concomitant]
  19. OMEPRAZOLE [Concomitant]
  20. OXYBUTYNIN CHLORIDE [Concomitant]
  21. PREDNISOLONE ACET. [Concomitant]
  22. SERTRALINE HCL [Concomitant]
  23. SIMVASTATIN [Concomitant]
  24. TERAZOSIN HCL [Concomitant]
  25. TRAVOPROST [Concomitant]

REACTIONS (3)
  - ANGIOEDEMA [None]
  - BLOOD PRESSURE INCREASED [None]
  - ORAL PAIN [None]
